FAERS Safety Report 18044608 (Version 1)
Quarter: 2020Q3

REPORT INFORMATION
  Report Type: Spontaneous
  Country: US (occurrence: US)
  Receive Date: 20200720
  Receipt Date: 20200720
  Transmission Date: 20201103
  Serious: No
  Sender: FDA-Public Use
  Company Number: US-ENDO PHARMACEUTICALS INC-2019-107791

PATIENT
  Age: 69 Year
  Sex: Female

DRUGS (2)
  1. ESTROGEN [Concomitant]
     Active Substance: ESTROGENS
     Indication: PRODUCT USED FOR UNKNOWN INDICATION
     Dosage: UNK UNKNOWN, UNKNOWN
     Route: 065
  2. CALCITONIN?SALMON [Suspect]
     Active Substance: CALCITONIN SALMON
     Indication: OSTEOPOROSIS
     Dosage: ONE SPRAY ALTERNATING NOSTRIL EVERY DAY
     Route: 045
     Dates: end: 201908

REACTIONS (5)
  - Throat irritation [Unknown]
  - Product quality issue [Unknown]
  - Oropharyngeal pain [Unknown]
  - Product odour abnormal [Unknown]
  - Nasal discomfort [Unknown]

NARRATIVE: CASE EVENT DATE: 201908
